FAERS Safety Report 7572163-0 (Version None)
Quarter: 2011Q2

REPORT INFORMATION
  Report Type: 
  Country: None (occurrence: None)
  Receive Date: 20110624
  Receipt Date: 20110620
  Transmission Date: 20111010
  Serious: Yes (Hospitalization)
  Sender: FDA-Public Use
  Company Number: DK-ABBOTT-11P-044-0734025-00

PATIENT
  Sex: Male
  Weight: 75 kg

DRUGS (2)
  1. ANTABUSE [Concomitant]
     Indication: ALCOHOL ABUSE
  2. HUMIRA [Suspect]
     Indication: PSORIASIS
     Route: 058
     Dates: start: 20080601

REACTIONS (2)
  - PHLEBITIS [None]
  - DEEP VEIN THROMBOSIS [None]
